FAERS Safety Report 25205650 (Version 4)
Quarter: 2025Q3

REPORT INFORMATION
  Report Type: Spontaneous
  Country: JP (occurrence: JP)
  Receive Date: 20250417
  Receipt Date: 20250806
  Transmission Date: 20251021
  Serious: No
  Sender: GALDERMA
  Company Number: JP-GALDERMA-JP2025005629

PATIENT

DRUGS (2)
  1. NEMOLIZUMAB [Suspect]
     Active Substance: NEMOLIZUMAB
     Indication: Dermatitis atopic
     Route: 058
  2. NEMOLIZUMAB [Suspect]
     Active Substance: NEMOLIZUMAB
     Route: 058

REACTIONS (1)
  - Dermatitis atopic [Recovered/Resolved]
